FAERS Safety Report 25100249 (Version 2)
Quarter: 2025Q2

REPORT INFORMATION
  Report Type: Report from Study
  Country: CO (occurrence: CO)
  Receive Date: 20250320
  Receipt Date: 20250403
  Transmission Date: 20250716
  Serious: Yes (Life-Threatening, Hospitalization, Other)
  Sender: NOVARTIS
  Company Number: CO-002147023-NVSC2024CO103205

PATIENT
  Age: 55 Year
  Sex: Female
  Weight: 74 kg

DRUGS (14)
  1. ELTROMBOPAG OLAMINE [Suspect]
     Active Substance: ELTROMBOPAG OLAMINE
     Indication: Immune thrombocytopenia
     Dosage: 100 MG, QD
     Route: 048
     Dates: start: 20160815
  2. ELTROMBOPAG OLAMINE [Suspect]
     Active Substance: ELTROMBOPAG OLAMINE
     Indication: Thrombocytopenic purpura
     Dosage: 50 MG, QD
     Route: 048
  3. ELTROMBOPAG OLAMINE [Suspect]
     Active Substance: ELTROMBOPAG OLAMINE
     Dosage: 100 MG, QD
     Route: 048
  4. ELTROMBOPAG OLAMINE [Suspect]
     Active Substance: ELTROMBOPAG OLAMINE
     Dosage: 100 MG, QD (2 TABLETS AT NIGHT)
     Route: 048
  5. METHOTREXATE [Suspect]
     Active Substance: METHOTREXATE
     Indication: Arthritis
     Route: 048
  6. METHOTREXATE [Suspect]
     Active Substance: METHOTREXATE
     Indication: Osteoarthritis
  7. CALCIUM [Concomitant]
     Active Substance: CALCIUM
     Indication: Product used for unknown indication
     Dosage: UNK, QD (3 MONTHS AGO)
     Route: 065
  8. THIAMINE [Concomitant]
     Active Substance: THIAMINE
     Indication: Product used for unknown indication
     Route: 065
  9. PREGABALIN [Concomitant]
     Active Substance: PREGABALIN
     Indication: Product used for unknown indication
     Dosage: 2 DOSAGE FORM, QD
     Route: 065
  10. PREGABALIN [Concomitant]
     Active Substance: PREGABALIN
     Dosage: 75 MG, QD
     Route: 065
  11. PREDNISOLONE [Concomitant]
     Active Substance: PREDNISOLONE
     Indication: Product used for unknown indication
     Dosage: 4 DOSAGE FORM, QD
     Route: 065
  12. PREDNISOLONE [Concomitant]
     Active Substance: PREDNISOLONE
     Dosage: 5 MG, QD BUT OCCASIONALLY
     Route: 065
  13. HYDROCODONE [Concomitant]
     Active Substance: HYDROCODONE
     Indication: Product used for unknown indication
     Dosage: 1 DOSAGE FORM, Q8H (10 MG STRENGTH)(TABLET)
     Route: 065
  14. HYDROCODONE [Concomitant]
     Active Substance: HYDROCODONE
     Dosage: 10 MG, QD
     Route: 065

REACTIONS (43)
  - Platelet count decreased [Recovered/Resolved]
  - Platelet count decreased [Not Recovered/Not Resolved]
  - Malaise [Not Recovered/Not Resolved]
  - Hypertension [Unknown]
  - Blood pressure increased [Unknown]
  - Decreased immune responsiveness [Not Recovered/Not Resolved]
  - Headache [Not Recovered/Not Resolved]
  - Immune thrombocytopenia [Not Recovered/Not Resolved]
  - Arthritis [Not Recovered/Not Resolved]
  - Disease recurrence [Not Recovered/Not Resolved]
  - Platelet count decreased [Recovered/Resolved]
  - Joint effusion [Not Recovered/Not Resolved]
  - Condition aggravated [Unknown]
  - Oedema peripheral [Recovered/Resolved]
  - Presyncope [Unknown]
  - Pain in extremity [Not Recovered/Not Resolved]
  - Discouragement [Not Recovered/Not Resolved]
  - Cyst [Not Recovered/Not Resolved]
  - Inflammation [Recovered/Resolved]
  - Fatigue [Not Recovered/Not Resolved]
  - Fibromyalgia [Unknown]
  - Insomnia [Unknown]
  - Pain [Recovered/Resolved]
  - Dysstasia [Unknown]
  - Vomiting [Unknown]
  - Osteoarthritis [Unknown]
  - Poor peripheral circulation [Unknown]
  - Pruritus [Unknown]
  - Body height decreased [Unknown]
  - Resorption bone increased [Unknown]
  - Migraine [Unknown]
  - Hypoaesthesia [Unknown]
  - Platelet disorder [Unknown]
  - Viral infection [Not Recovered/Not Resolved]
  - Diarrhoea [Not Recovered/Not Resolved]
  - Dizziness [Not Recovered/Not Resolved]
  - Illness [Not Recovered/Not Resolved]
  - Herpes virus infection [Unknown]
  - Swelling [Unknown]
  - Contusion [Unknown]
  - Weight decreased [Unknown]
  - Product availability issue [Unknown]
  - Off label use [Not Recovered/Not Resolved]

NARRATIVE: CASE EVENT DATE: 20240801
